FAERS Safety Report 5369729-5 (Version None)
Quarter: 2007Q2

REPORT INFORMATION
  Report Type: 
  Country: None (occurrence: None)
  Receive Date: 20070625
  Receipt Date: 20070618
  Transmission Date: 20071010
  Serious: Yes (Other)
  Sender: FDA-Public Use
  Company Number: US-ROXANE LABORATORIES, INC-2007-BP-11277RO

PATIENT
  Age: 21 Year
  Sex: Female

DRUGS (8)
  1. DEXAMETHASONE 0.5MG TAB [Suspect]
     Indication: HEADACHE
     Dosage: 36 MG/4 DAYS X 7 TAPERS (TOTAL 252 MG OVER 1 YEAR)
     Route: 048
     Dates: start: 20030801, end: 20040801
  2. TOPICAL CORTICOSTERIODS [Suspect]
     Indication: HYPERSENSITIVITY
     Route: 061
  3. INHALATION CORTICOSTERIODS [Suspect]
     Indication: ASTHMA
  4. METHYLPREDNISOLONE [Suspect]
     Indication: HEADACHE
     Dosage: 200 MG Q12H X 4 DAYS
     Route: 042
     Dates: start: 20031201, end: 20031201
  5. DIHYDROERGOTAMINE MESYLATE [Suspect]
     Indication: HEADACHE
     Dosage: 26 MG OVER 1 YEAR
     Dates: end: 20040801
  6. SUMATRIPTAN SUCCINATE [Concomitant]
     Indication: HEADACHE
     Dates: start: 20020101
  7. NORTRIPTYLINE HCL [Concomitant]
     Indication: HEADACHE
     Route: 048
     Dates: start: 20020101
  8. GABAPENTIN [Concomitant]
     Indication: HEADACHE
     Route: 048
     Dates: start: 20020101

REACTIONS (4)
  - COAGULATION FACTOR VIII LEVEL INCREASED [None]
  - DEEP VEIN THROMBOSIS [None]
  - OSTEONECROSIS [None]
  - OSTEOPENIA [None]
